FAERS Safety Report 15623379 (Version 1)
Quarter: 2018Q4

REPORT INFORMATION
  Report Type: Spontaneous
  Country: AU (occurrence: AU)
  Receive Date: 20181115
  Receipt Date: 20181115
  Transmission Date: 20190205
  Serious: Yes (Hospitalization)
  Sender: FDA-Public Use
  Company Number: AU-009507513-1811AUS001988

PATIENT
  Age: 24 Year
  Sex: Female

DRUGS (3)
  1. ROCURONIUM BROMIDE. [Suspect]
     Active Substance: ROCURONIUM BROMIDE
     Dosage: 15 MG IN TOTAL
  2. SUGAMMADEX SODIUM [Suspect]
     Active Substance: SUGAMMADEX SODIUM
     Dosage: 600 MILLIGRAM,UNK
     Route: 042
  3. FENTANYL. [Concomitant]
     Active Substance: FENTANYL

REACTIONS (2)
  - Muscle twitching [Unknown]
  - Overdose [Unknown]
